FAERS Safety Report 20263715 (Version 2)
Quarter: 2022Q1

REPORT INFORMATION
  Report Type: Spontaneous
  Country: US (occurrence: None)
  Receive Date: 20211231
  Receipt Date: 20220128
  Transmission Date: 20220424
  Serious: Yes (Other)
  Sender: FDA-Public Use
  Company Number: US-Hikma Pharmaceuticals-US-H14001-21-05578

PATIENT
  Age: 70 Year
  Sex: Female

DRUGS (1)
  1. CIPROFLOXACIN [Suspect]
     Active Substance: CIPROFLOXACIN
     Indication: Urinary tract infection
     Route: 048
     Dates: start: 20211214, end: 20211218

REACTIONS (29)
  - Adverse reaction [Unknown]
  - Vomiting [Recovered/Resolved]
  - Rash [Not Recovered/Not Resolved]
  - Insomnia [Unknown]
  - Hypoaesthesia [Not Recovered/Not Resolved]
  - Feeling abnormal [Not Recovered/Not Resolved]
  - Dizziness [Not Recovered/Not Resolved]
  - Loss of consciousness [Recovered/Resolved]
  - Abdominal distension [Unknown]
  - Paralysis [Unknown]
  - Pain [Recovered/Resolved]
  - Morbid thoughts [Unknown]
  - Chromaturia [Not Recovered/Not Resolved]
  - Hypersensitivity [Unknown]
  - Malaise [Unknown]
  - Blood urine [Unknown]
  - Hypertension [Unknown]
  - Hepatic failure [Unknown]
  - Hepatotoxicity [Unknown]
  - Feeding disorder [Not Recovered/Not Resolved]
  - Pollakiuria [Unknown]
  - Foreign body in throat [Unknown]
  - Hepatic enzyme increased [Unknown]
  - Polydipsia [Unknown]
  - Multiple organ dysfunction syndrome [Unknown]
  - Anxiety [Unknown]
  - Crying [Unknown]
  - Fear [Unknown]
  - Depressed mood [Unknown]

NARRATIVE: CASE EVENT DATE: 20211218
